FAERS Safety Report 4382072-6 (Version None)
Quarter: 2004Q2

REPORT INFORMATION
  Report Type: 
  Country: None (occurrence: None)
  Receive Date: 20040603
  Receipt Date: 20030418
  Transmission Date: 20050107
  Serious: Yes (Hospitalization)
  Sender: FDA-Public Use
  Company Number: 200313697US

PATIENT
  Age: 43 Year
  Sex: Male

DRUGS (10)
  1. LOVENOX [Suspect]
     Indication: DEEP VEIN THROMBOSIS
     Dates: start: 20030325, end: 20030330
  2. LOVENOX [Suspect]
     Indication: PULMONARY EMBOLISM
     Dates: start: 20030325, end: 20030330
  3. LOVENOX [Suspect]
     Indication: DEEP VEIN THROMBOSIS
     Dates: start: 20030101
  4. LOVENOX [Suspect]
     Indication: PULMONARY EMBOLISM
     Dates: start: 20030101
  5. LOVENOX [Suspect]
     Indication: DEEP VEIN THROMBOSIS
     Dates: start: 20030101
  6. LOVENOX [Suspect]
     Indication: PULMONARY EMBOLISM
     Dates: start: 20030101
  7. WARFARIN SODIUM [Suspect]
     Indication: DEEP VEIN THROMBOSIS
     Dosage: 3 MG QD
     Dates: start: 20030306
  8. WARFARIN SODIUM [Suspect]
     Indication: PULMONARY EMBOLISM
     Dosage: 3 MG QD
     Dates: start: 20030306
  9. WARFARIN SODIUM [Suspect]
     Indication: DEEP VEIN THROMBOSIS
     Dates: start: 20030101
  10. WARFARIN SODIUM [Suspect]
     Indication: PULMONARY EMBOLISM
     Dates: start: 20030101

REACTIONS (1)
  - HAEMORRHAGE [None]
